FAERS Safety Report 6000593-7 (Version None)
Quarter: 2008Q4

REPORT INFORMATION
  Report Type: 
  Country: None (occurrence: None)
  Receive Date: 20081215
  Receipt Date: 20081203
  Transmission Date: 20090506
  Serious: Yes (Hospitalization)
  Sender: FDA-Public Use
  Company Number: FR-GILEAD-2008-0019313

PATIENT
  Sex: Male

DRUGS (4)
  1. TRUVADA [Suspect]
     Indication: ACQUIRED IMMUNODEFICIENCY SYNDROME
     Dates: end: 20080617
  2. SUSTIVA [Concomitant]
     Indication: ACQUIRED IMMUNODEFICIENCY SYNDROME
     Route: 048
     Dates: end: 20080601
  3. GRANOCYTE [Concomitant]
     Indication: LEUKOPENIA
     Route: 058
     Dates: end: 20080601
  4. EPREX [Concomitant]
     Indication: ANAEMIA
     Route: 058
     Dates: end: 20080601

REACTIONS (2)
  - OSTEONECROSIS [None]
  - PHOSPHORUS METABOLISM DISORDER [None]
